FAERS Safety Report 20925120 (Version 1)
Quarter: 2022Q2

REPORT INFORMATION
  Report Type: Spontaneous
  Country: US (occurrence: US)
  Receive Date: 20220607
  Receipt Date: 20220607
  Transmission Date: 20220721
  Serious: Yes (Hospitalization, Other)
  Sender: FDA-Public Use
  Company Number: US-TAKEDA-2022TUS037099

PATIENT
  Sex: Male
  Weight: 77.4 kg

DRUGS (2)
  1. EXKIVITY [Suspect]
     Active Substance: MOBOCERTINIB
     Indication: Pancreatic carcinoma
     Dosage: 80 MILLIGRAM, QD
     Route: 065
  2. EXKIVITY [Suspect]
     Active Substance: MOBOCERTINIB
     Indication: Metastases to bone

REACTIONS (3)
  - Ischaemic stroke [Unknown]
  - Dysphagia [Unknown]
  - Off label use [Unknown]
